FAERS Safety Report 8153191-3 (Version None)
Quarter: 2012Q1

REPORT INFORMATION
  Report Type: 
  Country: None (occurrence: None)
  Receive Date: 20120221
  Receipt Date: 20120214
  Transmission Date: 20120608
  Serious: Yes (Hospitalization, Other)
  Sender: FDA-Public Use
  Company Number: US-PFIZER INC-2012040959

PATIENT
  Age: 10 Year
  Sex: Male
  Weight: 43.7 kg

DRUGS (1)
  1. EFFEXOR XR [Suspect]
     Dosage: 150 MG, TWICE A DAY

REACTIONS (10)
  - TACHYCARDIA [None]
  - ABDOMINAL PAIN [None]
  - HALLUCINATION [None]
  - SOMNOLENCE [None]
  - TREMOR [None]
  - URINARY RETENTION [None]
  - CONSTIPATION [None]
  - MEDICATION ERROR [None]
  - ANTICHOLINERGIC SYNDROME [None]
  - MYDRIASIS [None]
